FAERS Safety Report 13031340 (Version 1)
Quarter: 2016Q4

REPORT INFORMATION
  Report Type: Spontaneous
  Country: US (occurrence: US)
  Receive Date: 20161215
  Receipt Date: 20161215
  Transmission Date: 20170207
  Serious: No
  Sender: FDA-Public Use
  Company Number: US-SA-2016SA014551

PATIENT

DRUGS (1)
  1. FERRLECIT [Suspect]
     Active Substance: SODIUM FERRIC GLUCONATE COMPLEX
     Route: 065

REACTIONS (5)
  - Incorrect route of drug administration [Unknown]
  - Panic reaction [Unknown]
  - Burning sensation [Unknown]
  - Erythema [Unknown]
  - Pain [Unknown]
